FAERS Safety Report 8247165-1 (Version None)
Quarter: 2012Q1

REPORT INFORMATION
  Report Type: 
  Country: None (occurrence: None)
  Receive Date: 20120329
  Receipt Date: 20120329
  Transmission Date: 20120608
  Serious: Yes (Hospitalization)
  Sender: FDA-Public Use
  Company Number: None

PATIENT
  Age: 60 Year
  Sex: Male
  Weight: 87.9978 kg

DRUGS (1)
  1. CRESTOR [Suspect]
     Indication: BLOOD CHOLESTEROL INCREASED
     Dosage: 10MG 1/2 A PILL A DAY
     Dates: start: 20120131, end: 20120207

REACTIONS (7)
  - FORMICATION [None]
  - MYALGIA [None]
  - PAIN IN EXTREMITY [None]
  - MUSCULAR WEAKNESS [None]
  - BURNING SENSATION [None]
  - BLOOD DISORDER [None]
  - ARTHRALGIA [None]
